FAERS Safety Report 5006568-9 (Version None)
Quarter: 2006Q2

REPORT INFORMATION
  Report Type: 
  Country: None (occurrence: None)
  Receive Date: 20060519
  Receipt Date: 20060508
  Transmission Date: 20061013
  Serious: Yes (Other)
  Sender: FDA-Public Use
  Company Number: 2006GB00795

PATIENT
  Age: 29 Year
  Sex: Male
  Weight: 88 kg

DRUGS (7)
  1. QUETIAPINE FUMARATE [Suspect]
     Indication: AFFECTIVE DISORDER
     Dosage: VARIABLE DOSE
     Route: 048
     Dates: start: 20041013
  2. QUETIAPINE FUMARATE [Suspect]
     Indication: PSYCHOTIC DISORDER
     Dosage: VARIABLE DOSE
     Route: 048
     Dates: start: 20041013
  3. VALPROIC ACID [Suspect]
     Indication: AFFECTIVE DISORDER
     Dosage: VARIABLE DOSE
     Route: 048
     Dates: start: 20040422
  4. VALPROIC ACID [Suspect]
     Indication: PSYCHOTIC DISORDER
     Dosage: VARIABLE DOSE
     Route: 048
     Dates: start: 20040422
  5. CLONAZEPAM [Concomitant]
     Indication: AGITATION
     Route: 048
  6. CLONAZEPAM [Concomitant]
     Indication: POST-TRAUMATIC EPILEPSY
     Route: 048
  7. FLUORIGARD [Concomitant]
     Indication: TOOTH DISORDER
     Route: 048
     Dates: start: 20050411

REACTIONS (1)
  - NEUTROPENIA [None]
